FAERS Safety Report 8509236-1 (Version None)
Quarter: 2012Q3

REPORT INFORMATION
  Report Type: 
  Country: None (occurrence: None)
  Receive Date: 20120713
  Receipt Date: 20120706
  Transmission Date: 20120928
  Serious: Yes (Congenital Anomaly, Other)
  Sender: FDA-Public Use
  Company Number: PFIZER INC-2007095389

PATIENT
  Sex: Female

DRUGS (6)
  1. ZOLOFT [Suspect]
     Indication: DEPRESSION
     Dosage: 50 MG, UNK
     Route: 064
     Dates: start: 20040810
  2. MILK OF MAGNESIA TAB [Concomitant]
     Dosage: UNK
     Route: 064
  3. TENORETIC [Concomitant]
     Dosage: 50 MG, 1X/DAY
     Route: 064
  4. DEMEROL [Concomitant]
     Dosage: 50 MG, UNK
     Route: 064
  5. ACETAMINOPHEN [Concomitant]
     Dosage: UNK
     Route: 064
  6. MULTI-VITAMINS [Concomitant]
     Dosage: UNK
     Route: 064

REACTIONS (8)
  - COARCTATION OF THE AORTA [None]
  - CARDIAC FAILURE [None]
  - FOETAL EXPOSURE DURING PREGNANCY [None]
  - ORGAN FAILURE [None]
  - VOCAL CORD PARALYSIS [None]
  - DEVELOPMENTAL DELAY [None]
  - CARDIAC SEPTAL DEFECT [None]
  - GASTROOESOPHAGEAL REFLUX DISEASE [None]
